FAERS Safety Report 4685109-X (Version None)
Quarter: 2005Q2

REPORT INFORMATION
  Report Type: 
  Country: None (occurrence: None)
  Receive Date: 20050608
  Receipt Date: 20050426
  Transmission Date: 20051028
  Serious: Yes (Hospitalization)
  Sender: FDA-Public Use
  Company Number: JP-SP-2005-00810

PATIENT
  Age: 68 Year
  Sex: Male

DRUGS (7)
  1. IMMUCYST [Suspect]
     Indication: BLADDER CANCER
     Route: 043
     Dates: start: 20050317, end: 20050331
  2. NIFEDIPINE [Concomitant]
     Indication: HYPERTENSION
     Dosage: 40 MG/DAY
     Route: 048
  3. SIMVASTATIN [Concomitant]
     Indication: HYPERLIPIDAEMIA
     Dosage: 5 MG/DAY
     Route: 048
  4. TAMSULOSIN HCI [Concomitant]
     Dosage: 0.2 MG/DAY
     Route: 048
  5. ASPIRIN [Concomitant]
     Indication: ANGINA PECTORIS
     Dosage: 100 MG/DAY
     Route: 048
  6. GLIMEPIRIDE [Concomitant]
     Dosage: 2 MG/DAY
     Route: 048
     Dates: end: 20050419
  7. UFT [Concomitant]
     Indication: BLADDER CANCER
     Dosage: 300 MG/DAY
     Route: 048
     Dates: end: 20050419

REACTIONS (5)
  - CHILLS [None]
  - DIABETES MELLITUS INADEQUATE CONTROL [None]
  - HAEMATURIA [None]
  - HYPONATRAEMIA [None]
  - INTERSTITIAL LUNG DISEASE [None]
